FAERS Safety Report 23379625 (Version 2)
Quarter: 2024Q1

REPORT INFORMATION
  Report Type: Report from Study
  Country: FR (occurrence: FR)
  Receive Date: 20240108
  Receipt Date: 20240112
  Transmission Date: 20240409
  Serious: Yes (Death)
  Sender: FDA-Public Use
  Company Number: FR-IMMUNOCORE, LTD-2023-IMC-002133

PATIENT

DRUGS (2)
  1. TEBENTAFUSP [Suspect]
     Active Substance: TEBENTAFUSP
     Indication: Product used for unknown indication
     Dosage: UNK, SINGLE, DOSE 1
     Dates: start: 20231208
  2. TEBENTAFUSP [Suspect]
     Active Substance: TEBENTAFUSP
     Dosage: UNK, SINGLE, DOSE 2
     Dates: start: 20231220

REACTIONS (2)
  - Infection [Fatal]
  - Pulmonary embolism [Fatal]
